FAERS Safety Report 11636684 (Version 1)
Quarter: 2015Q4

REPORT INFORMATION
  Report Type: Spontaneous
  Country: CH (occurrence: CH)
  Receive Date: 20151016
  Receipt Date: 20151016
  Transmission Date: 20160304
  Serious: Yes (Other)
  Sender: FDA-Public Use
  Company Number: CH-ASPEN PHARMA TRADING LIMITED US-AG-2015-008922

PATIENT
  Age: 87 Year
  Sex: Female

DRUGS (2)
  1. CHLORAMBUCIL [Suspect]
     Active Substance: CHLORAMBUCIL
     Indication: CHRONIC LYMPHOCYTIC LEUKAEMIA
     Route: 065
  2. PREDNISONE. [Suspect]
     Active Substance: PREDNISONE
     Indication: CHRONIC LYMPHOCYTIC LEUKAEMIA
     Route: 065

REACTIONS (3)
  - Tuberculosis of genitourinary system [Not Recovered/Not Resolved]
  - Tuberculosis [Not Recovered/Not Resolved]
  - Cutaneous tuberculosis [Not Recovered/Not Resolved]
